FAERS Safety Report 17165797 (Version 2)
Quarter: 2020Q3

REPORT INFORMATION
  Report Type: Report from Study
  Country: PK (occurrence: PK)
  Receive Date: 20191217
  Receipt Date: 20200723
  Transmission Date: 20201102
  Serious: Yes (Other)
  Sender: FDA-Public Use
  Company Number: NVSC2019PK072059

PATIENT
  Age: 73 Year
  Sex: Male
  Weight: 42 kg

DRUGS (2)
  1. GLIVEC [Suspect]
     Active Substance: IMATINIB MESYLATE
     Dosage: 100 MG, BID
     Route: 048
     Dates: start: 20191015, end: 20200715
  2. GLIVEC [Suspect]
     Active Substance: IMATINIB MESYLATE
     Indication: CHRONIC MYELOID LEUKAEMIA
     Dosage: 2 DF, QD
     Route: 048
     Dates: start: 20190620, end: 20191213

REACTIONS (5)
  - Platelet count decreased [Unknown]
  - Neutropenia [Not Recovered/Not Resolved]
  - Inappropriate schedule of product administration [Unknown]
  - Bicytopenia [Not Recovered/Not Resolved]
  - White blood cell count decreased [Unknown]

NARRATIVE: CASE EVENT DATE: 20191213
